FAERS Safety Report 7237094-4 (Version None)
Quarter: 2010Q4

REPORT INFORMATION
  Report Type: 
  Country: None (occurrence: None)
  Receive Date: 20101130
  Receipt Date: 20090805
  Transmission Date: 20110411
  Serious: Yes (Hospitalization)
  Sender: FDA-Public Use
  Company Number: 2009SP020332

PATIENT
  Age: 38 Year
  Sex: Female
  Weight: 80.7403 kg

DRUGS (5)
  1. NUVARING [Suspect]
     Indication: CONTRACEPTION
     Dosage: 1 DF;QM;VAG
     Route: 067
     Dates: start: 20050320, end: 20050914
  2. RAPTIVA [Concomitant]
  3. METHOTREXATE [Concomitant]
  4. VALTREX [Concomitant]
  5. FOLIC ACID [Concomitant]

REACTIONS (4)
  - DEEP VEIN THROMBOSIS [None]
  - GENITAL HERPES [None]
  - POST THROMBOTIC SYNDROME [None]
  - UPPER RESPIRATORY TRACT INFECTION [None]
